FAERS Safety Report 9771360 (Version 2)
Quarter: 2013Q4

REPORT INFORMATION
  Report Type: Spontaneous
  Country: DK (occurrence: DK)
  Receive Date: 20131218
  Receipt Date: 20131218
  Transmission Date: 20140711
  Serious: Yes (Disabling)
  Sender: FDA-Public Use
  Company Number: DK-GE HEALTHCARE MEDICAL DIAGNOSTICS-OSCN-NO-0910S-0476

PATIENT
  Sex: Female
  Weight: 95 kg

DRUGS (10)
  1. OMNISCAN [Suspect]
     Indication: PRODUCT USED FOR UNKNOWN INDICATION
     Route: 042
     Dates: start: 20031128, end: 20031128
  2. MAGNEVIST [Suspect]
     Indication: PRODUCT USED FOR UNKNOWN INDICATION
  3. PREDNISOLON [Concomitant]
  4. MAREVAN [Concomitant]
  5. DOLOL [Concomitant]
  6. PANODIL [Concomitant]
  7. PRIMPERAN [Concomitant]
  8. VANCOMYCIN [Concomitant]
  9. FOSAMAX [Concomitant]
  10. HEPARIN [Concomitant]

REACTIONS (1)
  - Nephrogenic systemic fibrosis [Not Recovered/Not Resolved]
